FAERS Safety Report 6652395-6 (Version None)
Quarter: 2010Q1

REPORT INFORMATION
  Report Type: 
  Country: None (occurrence: None)
  Receive Date: 20100325
  Receipt Date: 20100318
  Transmission Date: 20100710
  Serious: Yes (Other)
  Sender: FDA-Public Use
  Company Number: BR-ABBOTT-10P-020-0633286-00

PATIENT
  Sex: Female

DRUGS (10)
  1. HUMIRA [Suspect]
     Indication: RHEUMATOID ARTHRITIS
     Route: 058
     Dates: start: 20080101
  2. METHOTREXATE [Concomitant]
     Indication: RHEUMATOID ARTHRITIS
     Dosage: 1ML PER WEEK
     Route: 058
  3. CORTISONE ACETATE [Concomitant]
     Indication: PAIN
     Route: 048
  4. BI-PROFENID [Concomitant]
     Indication: PAIN
     Route: 048
     Dates: start: 20091201
  5. ATENOLOL [Concomitant]
     Indication: HYPERTENSION
     Route: 048
  6. RIVOTRIL [Concomitant]
     Indication: INSOMNIA
     Route: 048
  7. SERTRALINE HCL [Concomitant]
     Indication: ANTIDEPRESSANT THERAPY
     Route: 048
  8. RANITIDINE [Concomitant]
     Indication: GASTRIC DISORDER
     Route: 048
  9. UNKNOWN MAGISTRAL FORMULA [Concomitant]
     Indication: ANXIETY
     Route: 048
  10. UNKNOWN MAGISTRAL FORMULA [Concomitant]
     Indication: FOOD CRAVING

REACTIONS (4)
  - FALL [None]
  - LOWER LIMB FRACTURE [None]
  - PAIN [None]
  - WEIGHT INCREASED [None]
